FAERS Safety Report 5452395-8 (Version None)
Quarter: 2007Q3

REPORT INFORMATION
  Report Type: 
  Country: None (occurrence: None)
  Receive Date: 20070914
  Receipt Date: 20070912
  Transmission Date: 20080115
  Serious: Yes (Hospitalization)
  Sender: FDA-Public Use
  Company Number: GB-BRISTOL-MYERS SQUIBB COMPANY-13905435

PATIENT
  Sex: Female
  Weight: 40 kg

DRUGS (6)
  1. BENDROFLUMETHIAZIDE [Suspect]
     Indication: HYPERTENSION
     Dosage: 2.5 MG DAILY
     Route: 048
     Dates: start: 20070808
  2. LISINOPRIL [Interacting]
     Indication: HYPERTENSION
     Route: 048
  3. ZANIDIP [Interacting]
     Indication: HYPERTENSION
     Route: 048
     Dates: start: 20070808, end: 20070810
  4. EPROSARTAN MESILATE [Concomitant]
     Route: 048
     Dates: start: 20061001
  5. SALBUTAMOL [Concomitant]
  6. SERETIDE [Concomitant]

REACTIONS (5)
  - CHEST PAIN [None]
  - DIZZINESS [None]
  - DRUG INTERACTION [None]
  - MALAISE [None]
  - VISUAL ACUITY REDUCED [None]
